FAERS Safety Report 17135609 (Version 1)
Quarter: 2019Q4

REPORT INFORMATION
  Report Type: Spontaneous
  Country: DE (occurrence: DE)
  Receive Date: 20191210
  Receipt Date: 20191210
  Transmission Date: 20200122
  Serious: Yes (Hospitalization, Other)
  Sender: FDA-Public Use
  Company Number: DE-COVIS PHARMA B.V.-2019COV00306

PATIENT
  Sex: Female

DRUGS (8)
  1. MONTELUKAST [Concomitant]
     Active Substance: MONTELUKAST SODIUM
     Dosage: 10 MG, 1X/DAY
  2. DYMISTA [Concomitant]
     Active Substance: AZELASTINE HYDROCHLORIDE\FLUTICASONE PROPIONATE
  3. SPIRIVA RESPIMAT [Concomitant]
     Active Substance: TIOTROPIUM BROMIDE
     Dosage: 2 DOSAGE UNITS, 1X/DAY
  4. SALBUTAMOL [Concomitant]
     Active Substance: ALBUTEROL
     Dosage: 2 TIMES AS NEEDED
  5. FORMOTEROL [Concomitant]
     Active Substance: FORMOTEROL
     Dosage: 12 MG, 2X/DAY
  6. CALCIDOSE VITAMINE D [Concomitant]
     Active Substance: CALCIUM\CHOLECALCIFEROL
  7. ALVESCO [Suspect]
     Active Substance: CICLESONIDE
     Indication: ASTHMA
     Dosage: 320 ?G, 1X/DAY
  8. PREDNISOLONE. [Concomitant]
     Active Substance: PREDNISOLONE
     Dosage: 5 MG, 1X/DAY

REACTIONS (9)
  - Collagen disorder [Unknown]
  - Pulmonary vasculitis [Unknown]
  - Eosinophilia [Unknown]
  - Metastases to lung [Unknown]
  - Granulomatosis with polyangiitis [Unknown]
  - Bronchiectasis [Unknown]
  - Dyspnoea [Unknown]
  - Productive cough [Unknown]
  - Hypoventilation [Unknown]
